FAERS Safety Report 4862229-8 (Version None)
Quarter: 2005Q4

REPORT INFORMATION
  Report Type: 
  Country: None (occurrence: None)
  Receive Date: 20051221
  Receipt Date: 20051212
  Transmission Date: 20060501
  Serious: Yes (Death, Hospitalization)
  Sender: FDA-Public Use
  Company Number: US-JNJFOC-20041201037

PATIENT
  Sex: Female
  Weight: 59.42 kg

DRUGS (10)
  1. REMICADE [Suspect]
     Route: 042
  2. REMICADE [Suspect]
     Indication: RHEUMATOID ARTHRITIS
     Route: 042
  3. PREDNISONE TAB [Concomitant]
  4. PREDNISONE TAB [Concomitant]
     Dosage: WAS ON THIS DOSE AT TIME OF DEATH
  5. PREDNISONE TAB [Concomitant]
  6. SYNTHROID [Concomitant]
  7. FOLIC ACID [Concomitant]
  8. CALCIUM GLUCONATE [Concomitant]
  9. ACTONEL [Concomitant]
  10. METHOTREXATE [Concomitant]

REACTIONS (6)
  - ARRHYTHMIA [None]
  - CARDIAC ARREST [None]
  - DISSEMINATED TUBERCULOSIS [None]
  - HERPES SIMPLEX [None]
  - PNEUMONIA [None]
  - SKIN ULCER [None]
